FAERS Safety Report 9840600 (Version 2)
Quarter: 2014Q1

REPORT INFORMATION
  Report Type: Spontaneous
  Country: US (occurrence: US)
  Receive Date: 20140124
  Receipt Date: 20140307
  Transmission Date: 20141002
  Serious: No
  Sender: FDA-Public Use
  Company Number: US-PFIZER INC-2014020503

PATIENT
  Age: 60 Year
  Sex: Female
  Weight: 46.26 kg

DRUGS (1)
  1. XELJANZ [Suspect]
     Indication: RHEUMATOID ARTHRITIS
     Dosage: 5 MG, 2X/DAY
     Route: 048
     Dates: start: 20130927, end: 20140205

REACTIONS (3)
  - Drug ineffective [Unknown]
  - Pain [Unknown]
  - Swelling [Unknown]
